FAERS Safety Report 8557514-2 (Version None)
Quarter: 2012Q2

REPORT INFORMATION
  Report Type: 
  Country: None (occurrence: None)
  Receive Date: 20120418
  Receipt Date: 20100324
  Transmission Date: 20120825
  Serious: Yes (Other)
  Sender: FDA-Public Use
  Company Number: PHHY2010US18687

PATIENT
  Sex: Female

DRUGS (5)
  1. LYRICA [Suspect]
     Indication: FIBROMYALGIA
     Dosage: 50 MG TWICE A DAY
     Dates: start: 20100205
  2. CYMBALTA [Suspect]
     Dates: end: 20100205
  3. METFFORMIN HYDROCHLORIDE [Suspect]
     Dosage: 500 MG, BID
  4. DIOVAN HCT [Suspect]
     Dosage: 116/12.5 MG (1 DAY)
  5. TRICOR [Suspect]

REACTIONS (6)
  - OEDEMA [None]
  - HYPERTENSION [None]
  - BLOOD PRESSURE SYSTOLIC INCREASED [None]
  - DIABETES MELLITUS INADEQUATE CONTROL [None]
  - WEIGHT INCREASED [None]
  - DIZZINESS [None]
